FAERS Safety Report 18311645 (Version 1)
Quarter: 2020Q3

REPORT INFORMATION
  Report Type: Spontaneous
  Country: US (occurrence: US)
  Receive Date: 20200924
  Receipt Date: 20200924
  Transmission Date: 20201103
  Serious: Yes (Disabling, Other)
  Sender: FDA-Public Use
  Company Number: None

PATIENT
  Age: 73 Year
  Sex: Male
  Weight: 103.5 kg

DRUGS (4)
  1. CRESTOR [Concomitant]
     Active Substance: ROSUVASTATIN CALCIUM
  2. METFORMIN ER 750 [Suspect]
     Active Substance: METFORMIN HYDROCHLORIDE
     Indication: DIABETES MELLITUS
     Route: 048
  3. OLMESARTEN [Concomitant]
  4. GLIPIZIDE LA [Concomitant]

REACTIONS (5)
  - Lethargy [None]
  - Asthenia [None]
  - Pain in extremity [None]
  - Muscle tightness [None]
  - Dyspnoea [None]

NARRATIVE: CASE EVENT DATE: 20200401
